FAERS Safety Report 8399886-8 (Version None)
Quarter: 2012Q2

REPORT INFORMATION
  Report Type: 
  Country: None (occurrence: None)
  Receive Date: 20120531
  Receipt Date: 20120521
  Transmission Date: 20120825
  Serious: Yes (Hospitalization, Other)
  Sender: FDA-Public Use
  Company Number: US-ELI_LILLY_AND_COMPANY-US201205008287

PATIENT
  Sex: Female

DRUGS (3)
  1. VITAMIN D [Concomitant]
     Dosage: UNK, WEEKLY (1/W)
  2. VITAMIN TAB [Concomitant]
     Dosage: UNK
  3. FORTEO [Suspect]
     Indication: OSTEOPOROSIS
     Dosage: 20 UG, QD
     Dates: start: 20100401

REACTIONS (6)
  - FEMUR FRACTURE [None]
  - THERAPEUTIC RESPONSE UNEXPECTED [None]
  - PSYCHOMOTOR HYPERACTIVITY [None]
  - THROMBOSIS [None]
  - MEMORY IMPAIRMENT [None]
  - PAIN [None]
